FAERS Safety Report 4755265-3 (Version None)
Quarter: 2005Q3

REPORT INFORMATION
  Report Type: 
  Country: None (occurrence: None)
  Receive Date: 20050829
  Receipt Date: 20050513
  Transmission Date: 20060218
  Serious: Yes (Death)
  Sender: FDA-Public Use
  Company Number: US-MERCK-0505USA01947

PATIENT
  Age: 58 Year
  Sex: Female
  Weight: 70 kg

DRUGS (7)
  1. VIOXX [Suspect]
     Indication: PAIN IN EXTREMITY
     Route: 048
     Dates: start: 20030429, end: 20030508
  2. VIOXX [Suspect]
     Route: 048
     Dates: start: 20030429, end: 20030508
  3. ASPIRIN [Concomitant]
     Indication: KNEE OPERATION
     Route: 065
     Dates: start: 20020101, end: 20030507
  4. TRAMADOL HYDROCHLORIDE [Concomitant]
     Indication: ARTHRALGIA
     Route: 065
  5. ACTIVELLA [Concomitant]
     Indication: HORMONE REPLACEMENT THERAPY
     Route: 065
  6. CLINORIL [Concomitant]
     Indication: ARTHRALGIA
     Route: 065
  7. ADVIL [Concomitant]
     Route: 065
     Dates: start: 20020101, end: 20030507

REACTIONS (6)
  - FACE INJURY [None]
  - GENERAL PHYSICAL HEALTH DETERIORATION [None]
  - PULMONARY EMBOLISM [None]
  - PULSE ABSENT [None]
  - RESPIRATORY ARREST [None]
  - SYNCOPE [None]
